FAERS Safety Report 15234822 (Version 9)
Quarter: 2018Q4

REPORT INFORMATION
  Report Type: Spontaneous
  Country: JP (occurrence: JP)
  Receive Date: 20180803
  Receipt Date: 20181102
  Transmission Date: 20190204
  Serious: Yes (Hospitalization)
  Sender: FDA-Public Use
  Company Number: JP-009507513-1807JPN003028J

PATIENT
  Age: 71 Year
  Sex: Female
  Weight: 52 kg

DRUGS (4)
  1. KEYTRUDA [Suspect]
     Active Substance: PEMBROLIZUMAB
     Indication: TRANSITIONAL CELL CANCER OF THE RENAL PELVIS AND URETER
     Dosage: 200 MILLIGRAM, Q3W
     Route: 041
     Dates: start: 20180613, end: 20180704
  2. POLYCARBOPHIL [Concomitant]
     Active Substance: POLYCARBOPHIL
     Dosage: UNK
     Route: 048
     Dates: start: 201712
  3. MESALAMINE. [Concomitant]
     Active Substance: MESALAMINE
     Dosage: OVER A YEAR AGO.
     Route: 048
     Dates: end: 20180903
  4. PENTASA [Suspect]
     Active Substance: MESALAMINE
     Indication: COLITIS ULCERATIVE
     Dosage: 2000 MILLIGRAM, BID
     Route: 048
     Dates: start: 20180903, end: 20180914

REACTIONS (1)
  - Hepatic function abnormal [Recovered/Resolved]

NARRATIVE: CASE EVENT DATE: 20180713
